FAERS Safety Report 8848921 (Version 1)
Quarter: 2012Q4

REPORT INFORMATION
  Report Type: Report from Study
  Country: US (occurrence: US)
  Receive Date: 20121018
  Receipt Date: 20121018
  Transmission Date: 20130627
  Serious: Yes (Other)
  Sender: FDA-Public Use
  Company Number: US-ASTELLAS-2012US010245

PATIENT

DRUGS (4)
  1. ERLOTINIB TABLET [Suspect]
     Indication: NON-SMALL CELL LUNG CANCER
     Dosage: 150 mg, UID/QD
     Route: 048
  2. HYDROXYCHLOROQUINE [Suspect]
     Indication: NON-SMALL CELL LUNG CANCER
     Dosage: UNK
     Route: 048
  3. HYDROXYCHLOROQUINE [Suspect]
     Dosage: 600 mg, UID/QD
     Route: 048
  4. HYDROXYCHLOROQUINE [Suspect]
     Dosage: 1000 mg, UID/QD
     Route: 048

REACTIONS (1)
  - Skin disorder [Unknown]
